FAERS Safety Report 6137600-7 (Version None)
Quarter: 2009Q1

REPORT INFORMATION
  Report Type: 
  Country: None (occurrence: None)
  Receive Date: 20090327
  Receipt Date: 20090327
  Transmission Date: 20090719
  Serious: Yes (Life-Threatening, Hospitalization)
  Sender: FDA-Public Use
  Company Number: None

PATIENT
  Age: 73 Year
  Sex: Female
  Weight: 72.5755 kg

DRUGS (6)
  1. COUMADIN [Suspect]
     Indication: HEART RATE INCREASED
     Dosage: 4 MG 1X/DAY ORAL PILL
     Route: 048
     Dates: start: 20080811
  2. DIGOXIN [Suspect]
     Dosage: 2X/DAY ORAL PILL
     Route: 048
     Dates: start: 20080811
  3. METFORMIN HCL [Concomitant]
  4. ACTOS [Concomitant]
  5. LISINOPRIL [Concomitant]
  6. SIMVASTATIN [Concomitant]

REACTIONS (3)
  - HAEMORRHAGE [None]
  - MYOCARDIAL INFARCTION [None]
  - TRANSIENT ISCHAEMIC ATTACK [None]
